FAERS Safety Report 5235774-3 (Version None)
Quarter: 2007Q1

REPORT INFORMATION
  Report Type: 
  Country: None (occurrence: None)
  Receive Date: 20061208
  Receipt Date: 20060619
  Transmission Date: 20070707
  Serious: Yes (Other)
  Sender: FDA-Public Use
  Company Number: 2006UW12969

PATIENT
  Age: 64 Year
  Sex: Male
  Weight: 83.914 kg

DRUGS (6)
  1. CRESTOR [Suspect]
     Indication: BLOOD CHOLESTEROL INCREASED
     Dosage: 10 MG PO
     Route: 048
     Dates: start: 20060401
  2. ACETYLSALICYLIC ACID SRT [Concomitant]
  3. PLAVIX [Concomitant]
  4. ALTACE [Concomitant]
  5. PRILOSEC [Concomitant]
  6. TOPROL-XL [Concomitant]

REACTIONS (2)
  - MICTURITION FREQUENCY DECREASED [None]
  - URINE COLOUR ABNORMAL [None]
